FAERS Safety Report 17768387 (Version 2)
Quarter: 2020Q2

REPORT INFORMATION
  Report Type: Report from Study
  Country: None (occurrence: US)
  Receive Date: 20200512
  Receipt Date: 20200609
  Transmission Date: 20200714
  Serious: Yes (Other)
  Sender: FDA-Public Use
  Company Number: US-ABBVIE-19K-163-3199288-00

PATIENT
  Sex: Female

DRUGS (3)
  1. HUMIRA [Suspect]
     Active Substance: ADALIMUMAB
     Indication: RHEUMATOID ARTHRITIS
     Route: 058
     Dates: start: 20190530, end: 201912
  2. HUMIRA [Suspect]
     Active Substance: ADALIMUMAB
     Route: 058
     Dates: end: 202001
  3. HUMIRA [Suspect]
     Active Substance: ADALIMUMAB
     Route: 058
     Dates: start: 2020

REACTIONS (11)
  - Injection site urticaria [Not Recovered/Not Resolved]
  - Arthralgia [Unknown]
  - Foot deformity [Unknown]
  - Injection site papule [Not Recovered/Not Resolved]
  - Procedural pain [Unknown]
  - Joint swelling [Unknown]
  - Injection site erythema [Recovered/Resolved]
  - Arthropathy [Unknown]
  - Joint stiffness [Unknown]
  - Gait disturbance [Unknown]
  - Viral infection [Unknown]

NARRATIVE: CASE EVENT DATE: 2019
